FAERS Safety Report 6579238-3 (Version None)
Quarter: 2010Q1

REPORT INFORMATION
  Report Type: 
  Country: None (occurrence: None)
  Receive Date: 20100212
  Receipt Date: 20100202
  Transmission Date: 20100710
  Serious: Yes (Life-Threatening, Hospitalization)
  Sender: FDA-Public Use
  Company Number: IT-PFIZER INC-2010014801

PATIENT
  Age: 84 Year
  Sex: Female

DRUGS (2)
  1. TORVAST [Suspect]
     Indication: HYPERCHOLESTEROLAEMIA
     Dosage: 20 MG, 1X/DAY
     Route: 048
     Dates: start: 20090909, end: 20091219
  2. SOTALEX [Suspect]
     Dosage: 160 MG, 1X/DAY
     Route: 048
     Dates: start: 20090904, end: 20091219

REACTIONS (6)
  - ASTHENIA [None]
  - HEPATITIS [None]
  - MYOPATHY [None]
  - NECROSIS [None]
  - RENAL FAILURE ACUTE [None]
  - VOMITING [None]
